FAERS Safety Report 9445159 (Version 3)
Quarter: 2013Q3

REPORT INFORMATION
  Report Type: Spontaneous
  Country: DE (occurrence: None)
  Receive Date: 20130802
  Receipt Date: 20130918
  Transmission Date: 20140515
  Serious: Yes (Death)
  Sender: FDA-Public Use
  Company Number: 2013MPI00451

PATIENT
  Age: 51 Year
  Sex: Male

DRUGS (10)
  1. BRENTUXIMAB VEDOTIN (BRENTUXIMAB VEDOTIN) INJECTION [Suspect]
     Indication: HODGKIN^S DISEASE
     Dosage: 126 MG, QCYCLE, INTRAVENOUS
     Route: 042
     Dates: start: 20120906, end: 20120906
  2. BRENTUXIMAB VEDOTIN (BRENTUXIMAB VEDOTIN) INJECTION [Suspect]
     Indication: DISEASE RECURRENCE
     Dosage: 126 MG, QCYCLE, INTRAVENOUS
     Route: 042
     Dates: start: 20120906, end: 20120906
  3. RAMIPRIL (RAMIPRIL) [Concomitant]
  4. DEXAMETHASONE (DEXAMETHASONE SODIUM PHOSPHATE) [Concomitant]
  5. VALTREX (VALACICLOVIR HYDROCHLORIDE) [Concomitant]
  6. CONCOR (BISOPROLOL FUMARATE) [Concomitant]
  7. URSOFALK (URSODEOXYCHOLIC ACID) [Concomitant]
  8. MAGNESIUM (MAGNESIUM HYDROXIDE) [Concomitant]
  9. PANTOZOL (ERYTHROMYCIN ETHYLSUCCINATE, SULFAFURAZOLE) [Concomitant]
  10. CELLCEPT (MYCOPHENOLATE MOFETIL) [Concomitant]

REACTIONS (4)
  - Pancreatitis [None]
  - Hepatic function abnormal [None]
  - Pancreatic pseudocyst [None]
  - Pulmonary sepsis [None]
